FAERS Safety Report 10143978 (Version 1)
Quarter: 2014Q2

REPORT INFORMATION
  Report Type: Spontaneous
  Country: US (occurrence: US)
  Receive Date: 20140430
  Receipt Date: 20140430
  Transmission Date: 20141212
  Serious: No
  Sender: FDA-Public Use
  Company Number: US-ASTRAZENECA-2014SE27273

PATIENT
  Age: 71 Year
  Sex: Female
  Weight: 61.7 kg

DRUGS (4)
  1. PULMICORT [Suspect]
     Indication: EMPHYSEMA
     Dosage: 180 MCG, 1 INHALATION BID
     Route: 055
     Dates: start: 20140416
  2. WARFARIN [Concomitant]
     Dosage: 2.5 MG 6 DAYS PER WEEK
     Route: 048
  3. BYSTOLIC [Concomitant]
     Indication: ATRIAL FIBRILLATION
     Dosage: 2.5 MG
     Route: 048
  4. SYNTHROID [Concomitant]
     Indication: THYROID DISORDER
     Dosage: 50 MCG
     Route: 048

REACTIONS (2)
  - Poor quality sleep [Recovered/Resolved]
  - Off label use [Not Recovered/Not Resolved]
